FAERS Safety Report 10082869 (Version 1)
Quarter: 2014Q2

REPORT INFORMATION
  Report Type: Spontaneous
  Country: PT (occurrence: PT)
  Receive Date: 20140416
  Receipt Date: 20140416
  Transmission Date: 20141212
  Serious: Yes (Death, Other)
  Sender: FDA-Public Use
  Company Number: PHHY2014PT046230

PATIENT
  Age: 36 Year
  Sex: Female

DRUGS (6)
  1. ZOLEDRONATE [Suspect]
     Indication: METASTASES TO BONE
     Route: 042
     Dates: start: 201009
  2. CARBOPLATIN [Suspect]
     Indication: CHEMOTHERAPY
     Dosage: 5 MG/M2, UNK
     Dates: start: 201009
  3. VINORELBINE [Suspect]
     Indication: CHEMOTHERAPY
     Dosage: 60 MG/M2, UNK
     Dates: start: 201009
  4. PEMETREXED [Concomitant]
     Indication: CHEMOTHERAPY
     Dosage: 500 MG/M2,
  5. RADIOTHERAPY [Concomitant]
     Dosage: 30 GY, PER 12 SESSION
  6. CRIZOTINIB [Concomitant]
     Dosage: 250 MG, BID
     Dates: start: 201103

REACTIONS (4)
  - Death [Fatal]
  - Metastases to bone [Unknown]
  - Disease progression [Unknown]
  - Malignant neoplasm progression [Unknown]
